FAERS Safety Report 4993431-2 (Version None)
Quarter: 2006Q2

REPORT INFORMATION
  Report Type: 
  Country: None (occurrence: None)
  Receive Date: 20060505
  Receipt Date: 20060427
  Transmission Date: 20061013
  Serious: Yes (Hospitalization)
  Sender: FDA-Public Use
  Company Number: 2006AP01980

PATIENT
  Age: 16804 Day
  Sex: Female

DRUGS (6)
  1. CANDESARTAN CILEXETIL [Suspect]
     Dosage: LONG TERM
     Route: 048
  2. OPTIRAY 320 [Suspect]
     Dates: start: 20050315, end: 20050315
  3. MIDAZOLAM [Suspect]
     Indication: PREMEDICATION
     Route: 042
     Dates: start: 20050315, end: 20050315
  4. PREMARIN [Concomitant]
  5. ASPIRIN [Concomitant]
  6. SIMVASTATIN [Concomitant]

REACTIONS (6)
  - DRY MOUTH [None]
  - DYSPHAGIA [None]
  - DYSPNOEA [None]
  - RASH MACULO-PAPULAR [None]
  - RASH PRURITIC [None]
  - SWOLLEN TONGUE [None]
